FAERS Safety Report 5472145-9 (Version None)
Quarter: 2007Q3

REPORT INFORMATION
  Report Type: 
  Country: None (occurrence: None)
  Receive Date: 20070925
  Receipt Date: 20070912
  Transmission Date: 20080115
  Serious: Yes (Hospitalization)
  Sender: FDA-Public Use
  Company Number: RENA-12282

PATIENT
  Age: 50 Year
  Sex: Female

DRUGS (10)
  1. RENAGEL [Suspect]
     Indication: HYPERPHOSPHATAEMIA
     Dosage: 8.8 G DAILY PO
     Route: 048
     Dates: start: 20070723
  2. NIFEDIPINE [Concomitant]
  3. DIOVAN [Concomitant]
  4. SENSIPAR [Concomitant]
  5. GABAPENTIN [Concomitant]
  6. CLONIDINE [Concomitant]
  7. MINOXIDIL [Concomitant]
  8. LOMOTIL [Concomitant]
  9. OMEPRAZOLE [Concomitant]
  10. AZITHROMYCIN [Concomitant]

REACTIONS (2)
  - AMMONIA INCREASED [None]
  - PHARMACEUTICAL PRODUCT COMPLAINT [None]
